FAERS Safety Report 21335791 (Version 1)
Quarter: 2022Q3

REPORT INFORMATION
  Report Type: Spontaneous
  Country: US (occurrence: US)
  Receive Date: 20220915
  Receipt Date: 20220915
  Transmission Date: 20221027
  Serious: Yes (Death, Life-Threatening, Other)
  Sender: FDA-Public Use
  Company Number: US-AMGEN-USASP2022156248

PATIENT

DRUGS (7)
  1. FILGRASTIM [Suspect]
     Active Substance: FILGRASTIM
     Indication: Neutropenia
     Route: 065
  2. FLUDARABINE [Concomitant]
     Active Substance: FLUDARABINE PHOSPHATE
  3. BUSULFAN [Concomitant]
     Active Substance: BUSULFAN
  4. CYCLOPHOSPHAMIDE [Concomitant]
     Active Substance: CYCLOPHOSPHAMIDE
     Dosage: 50 MILLIGRAM/KILOGRAM
  5. TACROLIMUS [Concomitant]
     Active Substance: TACROLIMUS
     Dosage: 5-15MCG/L
  6. MYCOPHENOLATE MOFETIL [Concomitant]
     Active Substance: MYCOPHENOLATE MOFETIL
     Dosage: 1 GRAM, Q8H
  7. ACYCLOVIR [Concomitant]
     Active Substance: ACYCLOVIR
     Dosage: 800 MILLIGRAM, BID
     Route: 048

REACTIONS (10)
  - Death [Fatal]
  - Infection [Fatal]
  - Multiple organ dysfunction syndrome [Fatal]
  - Neoplasm malignant [Fatal]
  - Cytomegalovirus viraemia [Unknown]
  - Sepsis [Fatal]
  - Acute graft versus host disease [Unknown]
  - Neutropenia [Unknown]
  - Thrombocytopenia [Unknown]
  - Chronic graft versus host disease [Unknown]
